FAERS Safety Report 9878712 (Version 2)
Quarter: 2014Q1

REPORT INFORMATION
  Report Type: Spontaneous
  Country: US (occurrence: US)
  Receive Date: 20140206
  Receipt Date: 20140206
  Transmission Date: 20141002
  Serious: No
  Sender: FDA-Public Use
  Company Number: US-ALLERGAN-1309156US

PATIENT
  Age: 40 Year
  Sex: Female

DRUGS (5)
  1. BOTOX COSMETIC [Suspect]
     Indication: SKIN WRINKLING
     Dosage: 10 UNITS, SINGLE
     Route: 030
     Dates: start: 20130619, end: 20130619
  2. BOTOX COSMETIC [Suspect]
     Indication: SKIN WRINKLING
     Dosage: 8 UNITS, SINGLE
     Route: 030
     Dates: start: 20130619, end: 20130619
  3. RETIN A [Concomitant]
     Indication: ACNE
     Dosage: UNK
  4. ACANYA [Concomitant]
     Indication: ACNE
     Dosage: UNK
  5. SPIRONOLACTONE [Concomitant]
     Indication: ACNE
     Dosage: UNK

REACTIONS (2)
  - Wrong technique in drug usage process [Unknown]
  - Facial paresis [Recovering/Resolving]
